FAERS Safety Report 13454853 (Version 1)
Quarter: 2017Q2

REPORT INFORMATION
  Report Type: Report from Study
  Country: AU (occurrence: AU)
  Receive Date: 20170419
  Receipt Date: 20170419
  Transmission Date: 20170830
  Serious: Yes (Hospitalization)
  Sender: FDA-Public Use
  Company Number: AU-ROCHE-1475168

PATIENT
  Age: 38 Year
  Sex: Female
  Weight: 71.3 kg

DRUGS (19)
  1. VINCRISTINE [Suspect]
     Active Substance: VINCRISTINE
     Indication: NON-HODGKIN^S LYMPHOMA
     Dosage: MOST RECENT DOSE RECEIVED ON 10/OCT/2014 (AT 16:27)
     Route: 065
     Dates: start: 20141010
  2. ALLOPURINOL. [Concomitant]
     Active Substance: ALLOPURINOL
     Indication: NEOPLASM PROPHYLAXIS
     Dosage: INDICATION: TUMOURLYSIS PROPHYLAXIS
     Route: 065
     Dates: start: 20141007, end: 20141127
  3. HYDROCORTISONE. [Concomitant]
     Active Substance: HYDROCORTISONE
     Indication: PROPHYLAXIS
     Route: 065
     Dates: start: 20141010, end: 20141010
  4. VENETOCLAX [Suspect]
     Active Substance: VENETOCLAX
     Indication: NON-HODGKIN^S LYMPHOMA
     Dosage: MOST RECENT DOSE RECEIVED ON 13/OCT/2014 200 (UNIT NOT REPORTED)
     Route: 065
     Dates: start: 20141013
  5. PANADOL (AUSTRALIA) [Concomitant]
     Indication: PROPHYLAXIS
     Route: 065
     Dates: start: 20141010, end: 20141010
  6. MAXOLON [Concomitant]
     Active Substance: METOCLOPRAMIDE HYDROCHLORIDE
     Indication: PROPHYLAXIS OF NAUSEA AND VOMITING
     Route: 065
     Dates: start: 20141010, end: 20141217
  7. NORMAL SALINE [Concomitant]
     Active Substance: SODIUM CHLORIDE
     Indication: PROPHYLAXIS
     Route: 065
     Dates: start: 20141013, end: 20141013
  8. BACTRIM [Concomitant]
     Active Substance: SULFAMETHOXAZOLE\TRIMETHOPRIM
     Dosage: INDICATION: INFECTIVE PROPHYLAXIS
     Route: 065
     Dates: start: 20140911, end: 20141217
  9. PREDNISONE. [Suspect]
     Active Substance: PREDNISONE
     Indication: NON-HODGKIN^S LYMPHOMA
     Dosage: MOST RECENT DOSE RECEIVED ON 13/OCT/2014 100 (UNIT NOT REPORTED)
     Route: 065
     Dates: start: 20141010
  10. DEXTROSE. [Concomitant]
     Active Substance: DEXTROSE
     Route: 065
     Dates: start: 20141013, end: 20141013
  11. OBINUTUZUMAB [Suspect]
     Active Substance: OBINUTUZUMAB
     Indication: NON-HODGKIN^S LYMPHOMA
     Dosage: MOST RECENT DOSE RECEIVED ON 10/OCT/2014
     Route: 065
     Dates: start: 20141010
  12. HYDROCORTISONE. [Concomitant]
     Active Substance: HYDROCORTISONE
     Indication: INFUSION RELATED REACTION
     Dosage: SELECT IF ONGOING=NO
     Route: 065
     Dates: start: 20141010, end: 20141010
  13. PANTOPRAZOLE [Concomitant]
     Active Substance: PANTOPRAZOLE
     Indication: DYSPEPSIA
     Route: 065
     Dates: start: 20141013, end: 20141217
  14. CETRIZINE [Concomitant]
     Active Substance: CETIRIZINE HYDROCHLORIDE
     Indication: PROPHYLAXIS
     Route: 065
     Dates: start: 20141010, end: 20141010
  15. VALACICLOVIR [Concomitant]
     Active Substance: VALACYCLOVIR HYDROCHLORIDE
     Dosage: INDICATION: INFECTIVE PROPHYLAXIS
     Route: 065
     Dates: start: 20140911, end: 20141217
  16. DOXORUBICIN [Suspect]
     Active Substance: DOXORUBICIN
     Indication: NON-HODGKIN^S LYMPHOMA
     Dosage: MOST RECENT DOSE RECEIVED ON 10/OCT/2014 (AT 16:15)
     Route: 065
     Dates: start: 20141010
  17. ONDANSETRON [Concomitant]
     Active Substance: ONDANSETRON
     Indication: PROPHYLAXIS OF NAUSEA AND VOMITING
     Route: 065
     Dates: start: 20141010, end: 20141012
  18. CYCLOPHOSPHAMIDE. [Suspect]
     Active Substance: CYCLOPHOSPHAMIDE
     Indication: NON-HODGKIN^S LYMPHOMA
     Dosage: MOST RECENT DOSE RECEIVED ON 10/OCT/2014 (AT 16:35)
     Route: 065
     Dates: start: 20141010
  19. CYMBALTA [Concomitant]
     Active Substance: DULOXETINE HYDROCHLORIDE
     Indication: ANXIETY
     Dosage: SELECT IF ONGOING=YES
     Route: 065
     Dates: start: 2012

REACTIONS (1)
  - Blood potassium increased [Recovered/Resolved]

NARRATIVE: CASE EVENT DATE: 20141013
